FAERS Safety Report 9725598 (Version 1)
Quarter: 2013Q4

REPORT INFORMATION
  Report Type: Spontaneous
  Country: US (occurrence: None)
  Receive Date: 20131202
  Receipt Date: 20131202
  Transmission Date: 20140711
  Serious: No
  Sender: FDA-Public Use
  Company Number: None

PATIENT
  Age: 61 Year
  Sex: Male
  Weight: 104.33 kg

DRUGS (1)
  1. TESTIM [Suspect]
     Indication: BLOOD TESTOSTERONE DECREASED
     Dosage: 1 TUBE PER DAY ONCE DIALY APPLIED TO A SURFACE, USUALLY THE SKIN
     Dates: start: 20130904, end: 20131117

REACTIONS (1)
  - Blood testosterone decreased [None]
